FAERS Safety Report 9052529 (Version 3)
Quarter: 2013Q4

REPORT INFORMATION
  Report Type: Report from Study
  Country: CA (occurrence: CA)
  Receive Date: 20130207
  Receipt Date: 20131107
  Transmission Date: 20140711
  Serious: Yes (Death, Hospitalization, Other)
  Sender: FDA-Public Use
  Company Number: PHHY2013CA008966

PATIENT
  Sex: Female
  Weight: 5.26 kg

DRUGS (16)
  1. ACLASTA [Suspect]
     Indication: OSTEOPOROSIS POSTMENOPAUSAL
     Dosage: 5 MG, UKN
     Route: 042
     Dates: start: 20120207
  2. ACLASTA [Suspect]
     Indication: UPPER GASTROINTESTINAL HAEMORRHAGE
     Dosage: 5 MG, UNK
     Route: 042
     Dates: start: 20130107
  3. RAMIPRIL [Concomitant]
     Dosage: 5 MG, QD
  4. BISOPROLOL [Concomitant]
     Dosage: 5 MG, QD
  5. ASA [Concomitant]
     Dosage: 81 MG, QD
  6. POTASSIUM CHLORIDE [Concomitant]
     Dosage: 600 MG, BID
  7. FUROSEMIDE [Concomitant]
     Dosage: 40 MG, QAM
  8. FUROSEMIDE [Concomitant]
     Dosage: 20 MG, QHS
  9. PREDNISONE [Concomitant]
     Dosage: 5 MG, QD
  10. PREDNISONE [Concomitant]
     Dosage: STRESS DOSES
  11. PANTOPRAZOLE [Concomitant]
     Dosage: 40 MG, QD
  12. APO HYDROXYQUINE [Concomitant]
     Dosage: 200 MG, QD
  13. ATORVASTATIN [Concomitant]
     Dosage: 40 MG, QD
  14. DIGOXIN [Concomitant]
     Dosage: 0.062 MG, QD
  15. FERROUS GLUCONATE [Concomitant]
     Dosage: 1 DF, QD
  16. VITAMIN D [Concomitant]
     Dosage: 2 DF, QD

REACTIONS (26)
  - Renal failure acute [Fatal]
  - Fatigue [Fatal]
  - Oliguria [Fatal]
  - Hyperkalaemia [Fatal]
  - Diarrhoea [Fatal]
  - Dizziness [Fatal]
  - Hypotension [Fatal]
  - Hypovolaemia [Fatal]
  - Pneumonia [Recovered/Resolved]
  - Cardiac failure congestive [Unknown]
  - Oedema peripheral [Unknown]
  - Ascites [Unknown]
  - Pain [Unknown]
  - Discomfort [Unknown]
  - Ulcer haemorrhage [Recovered/Resolved]
  - Myocardial infarction [Unknown]
  - Dilatation ventricular [Unknown]
  - Right ventricular dysfunction [Unknown]
  - Pleural effusion [Unknown]
  - Pulmonary fibrosis [Unknown]
  - Candida infection [Unknown]
  - Enterococcal infection [Unknown]
  - Staphylococcal infection [Unknown]
  - Hypophagia [Unknown]
  - Atrial fibrillation [Unknown]
  - Dehydration [Unknown]
